APPROVED DRUG PRODUCT: AMLODIPINE AND OLMESARTAN MEDOXOMIL
Active Ingredient: AMLODIPINE BESYLATE; OLMESARTAN MEDOXOMIL
Strength: EQ 5MG BASE;20MG
Dosage Form/Route: TABLET;ORAL
Application: A207435 | Product #001 | TE Code: AB
Applicant: MICRO LABS LTD
Approved: Nov 2, 2017 | RLD: No | RS: No | Type: RX